FAERS Safety Report 5586083-4 (Version None)
Quarter: 2007Q4

REPORT INFORMATION
  Report Type: 
  Country: None (occurrence: None)
  Receive Date: 20071205
  Receipt Date: 20070724
  Transmission Date: 20080405
  Serious: Yes (Hospitalization, Disabling, Other)
  Sender: FDA-Public Use
  Company Number: HQWYE217425JUL07

PATIENT
  Age: 19 Year
  Sex: Female

DRUGS (3)
  1. EFFEXOR XR [Suspect]
     Dosage: 75 MG 1X PER 1 TOT, ORAL
     Route: 048
  2. WELLBUTRIN [Suspect]
  3. DEPAKOTE [Concomitant]

REACTIONS (1)
  - CONVULSION [None]
